FAERS Safety Report 12281717 (Version 1)
Quarter: 2016Q2

REPORT INFORMATION
  Report Type: Spontaneous
  Country: US (occurrence: US)
  Receive Date: 20160419
  Receipt Date: 20160419
  Transmission Date: 20160815
  Serious: Yes (Other)
  Sender: FDA-Public Use
  Company Number: US-GLAXOSMITHKLINE-US2016GSK051945

PATIENT
  Sex: Male

DRUGS (1)
  1. LOVAZA [Suspect]
     Active Substance: OMEGA-3-ACID ETHYL ESTERS
     Indication: BLOOD TRIGLYCERIDES
     Dosage: 1 G, UNK
     Dates: start: 20160113

REACTIONS (4)
  - Cerebrovascular accident [Unknown]
  - Blood triglycerides increased [Unknown]
  - Drug dose omission [Unknown]
  - Myocardial infarction [Unknown]
